FAERS Safety Report 5241137-7 (Version None)
Quarter: 2007Q1

REPORT INFORMATION
  Report Type: 
  Country: None (occurrence: None)
  Receive Date: 20070220
  Receipt Date: 20070207
  Transmission Date: 20070707
  Serious: Yes (Hospitalization)
  Sender: FDA-Public Use
  Company Number: CA-JNJFOC-20060503658

PATIENT
  Sex: Female

DRUGS (10)
  1. REMICADE [Suspect]
     Route: 042
  2. REMICADE [Suspect]
     Route: 042
  3. REMICADE [Suspect]
     Dosage: DOSE 200 MG / TWO INFUSIONS GIVEN ON UNKNOWN DATES
     Route: 042
  4. REMICADE [Suspect]
     Indication: WEGENER'S GRANULOMATOSIS
     Route: 042
  5. PREDNISONE [Concomitant]
  6. FOSAMAX [Concomitant]
  7. CELEXA [Concomitant]
  8. SEPTRA [Concomitant]
  9. PANTELOC [Concomitant]
  10. KTEC [Concomitant]

REACTIONS (3)
  - ABSCESS [None]
  - POST PROCEDURAL COMPLICATION [None]
  - WEGENER'S GRANULOMATOSIS [None]
